FAERS Safety Report 6145301-4 (Version None)
Quarter: 2009Q2

REPORT INFORMATION
  Report Type: 
  Country: None (occurrence: None)
  Receive Date: 20090406
  Receipt Date: 20090402
  Transmission Date: 20091009
  Serious: Yes (Life-Threatening)
  Sender: FDA-Public Use
  Company Number: TR-ASTRAZENECA-2009SE01360

PATIENT
  Age: 18173 Day
  Sex: Female
  Weight: 65 kg

DRUGS (3)
  1. CRESTOR [Suspect]
     Indication: DYSLIPIDAEMIA
     Route: 048
     Dates: start: 20090401, end: 20090402
  2. FAMODIN [Concomitant]
     Indication: DYSPEPSIA
     Route: 048
     Dates: start: 20090401, end: 20090402
  3. GAVISCON [Concomitant]

REACTIONS (7)
  - ABDOMINAL DISTENSION [None]
  - ARTHRALGIA [None]
  - DYSPNOEA [None]
  - FATIGUE [None]
  - FEAR OF DEATH [None]
  - HEART RATE ABNORMAL [None]
  - PALPITATIONS [None]
